FAERS Safety Report 8385155-9 (Version None)
Quarter: 2012Q2

REPORT INFORMATION
  Report Type: 
  Country: None (occurrence: None)
  Receive Date: 20120525
  Receipt Date: 20120515
  Transmission Date: 20120825
  Serious: Yes (Other)
  Sender: FDA-Public Use
  Company Number: JP-BRISTOL-MYERS SQUIBB COMPANY-16600074

PATIENT
  Age: 66 Year
  Sex: Female
  Weight: 42 kg

DRUGS (15)
  1. ORENCIA [Suspect]
     Indication: RHEUMATOID ARTHRITIS
     Dosage: 08JUL11,05AUG11,21OCT11,16DEC11.
     Route: 041
     Dates: start: 20110624
  2. HALCION [Concomitant]
     Indication: INSOMNIA
  3. COTRIM [Concomitant]
     Indication: PROPHYLAXIS
  4. METHOTREXATE [Suspect]
     Indication: RHEUMATOID ARTHRITIS
     Dosage: 6MG:UNK-04APR11, 4MG:15APR11-ONG.
  5. LOXONIN [Concomitant]
     Indication: RHEUMATOID ARTHRITIS
  6. KETOPROFEN [Concomitant]
     Indication: RHEUMATOID ARTHRITIS
  7. HYALEIN [Concomitant]
     Indication: DRY EYE
  8. MUCODYNE [Concomitant]
  9. ALENDRONATE SODIUM [Concomitant]
  10. PREDNISOLONE [Concomitant]
     Indication: RHEUMATOID ARTHRITIS
     Route: 048
  11. MUCOSTA [Concomitant]
  12. FLOMAX [Concomitant]
  13. LEVOFLOXACIN [Concomitant]
  14. OLMESARTAN MEDOXOMIL [Concomitant]
  15. MEDICON [Concomitant]

REACTIONS (1)
  - PLATELET COUNT DECREASED [None]
